FAERS Safety Report 10141486 (Version 1)
Quarter: 2014Q2

REPORT INFORMATION
  Report Type: Spontaneous
  Country: CN (occurrence: CN)
  Receive Date: 20140429
  Receipt Date: 20140429
  Transmission Date: 20141212
  Serious: Yes (Life-Threatening, Hospitalization, Other)
  Sender: FDA-Public Use
  Company Number: CN-PFIZER INC-2014116828

PATIENT
  Age: 64 Year
  Sex: Female

DRUGS (2)
  1. CORDARONE [Suspect]
     Indication: PROPHYLAXIS
     Dosage: 150 MG, DAILY
     Route: 048
     Dates: start: 20131011, end: 20131022
  2. CORDARONE [Suspect]
     Indication: PROPHYLAXIS
     Dosage: 150 MG, DAILY
     Route: 041
     Dates: start: 20131011, end: 20131022

REACTIONS (3)
  - Adams-Stokes syndrome [Recovered/Resolved]
  - Torsade de pointes [Recovered/Resolved]
  - Electrocardiogram QT prolonged [Recovered/Resolved]
